FAERS Safety Report 15276009 (Version 1)
Quarter: 2018Q3

REPORT INFORMATION
  Report Type: Spontaneous
  Country: US (occurrence: US)
  Receive Date: 20180727
  Receipt Date: 20180727
  Transmission Date: 20181010
  Serious: No
  Sender: FDA-Public Use
  Company Number: None

PATIENT
  Age: 69 Year
  Sex: Female

DRUGS (18)
  1. CEFEPIME [Concomitant]
     Active Substance: CEFEPIME HYDROCHLORIDE
  2. FUROSEMIDE. [Concomitant]
     Active Substance: FUROSEMIDE
  3. MAGNESIUM OXIDE. [Concomitant]
     Active Substance: MAGNESIUM OXIDE
  4. ONDANSETRON [Concomitant]
     Active Substance: ONDANSETRON
  5. SENNA [Concomitant]
     Active Substance: SENNA LEAF\SENNOSIDES\SENNOSIDES A AND B
  6. VANCOMYCIN [Concomitant]
     Active Substance: VANCOMYCIN
  7. AMLODIPINE [Concomitant]
     Active Substance: AMLODIPINE BESYLATE
  8. DOCUSATE [Concomitant]
     Active Substance: DOCUSATE
  9. INSULIN ASPART [Concomitant]
     Active Substance: INSULIN ASPART
  10. ALLOPURINOIL [Concomitant]
  11. INSULIN GLARGINE [Concomitant]
     Active Substance: INSULIN GLARGINE
  12. ARSENIC TRIOXIDE [Suspect]
     Active Substance: ARSENIC TRIOXIDE
     Indication: LEUKAEMIA
     Route: 042
     Dates: start: 20180523, end: 20180528
  13. ACYCLOVIR. [Concomitant]
     Active Substance: ACYCLOVIR
  14. PREDNISONE. [Concomitant]
     Active Substance: PREDNISONE
  15. TRETINOIN. [Concomitant]
     Active Substance: TRETINOIN
  16. ACETAMINOPHEN. [Concomitant]
     Active Substance: ACETAMINOPHEN
  17. CASPOFUNGIN [Concomitant]
     Active Substance: CASPOFUNGIN
  18. CETIRIZINE [Concomitant]
     Active Substance: CETIRIZINE HYDROCHLORIDE

REACTIONS (7)
  - Pyrexia [None]
  - Sepsis [None]
  - Electrocardiogram QT prolonged [None]
  - Weight increased [None]
  - Acute promyelocytic leukaemia differentiation syndrome [None]
  - Hypoxia [None]
  - White blood cell count increased [None]

NARRATIVE: CASE EVENT DATE: 20180606
